FAERS Safety Report 6375552-5 (Version None)
Quarter: 2009Q3

REPORT INFORMATION
  Report Type: 
  Country: None (occurrence: None)
  Receive Date: 20090924
  Receipt Date: 20090917
  Transmission Date: 20100115
  Serious: Yes (Hospitalization, Other)
  Sender: FDA-Public Use
  Company Number: US-BAYER-200914423BCC

PATIENT
  Age: 97 Year
  Sex: Male
  Weight: 66 kg

DRUGS (1)
  1. ASPIRIN [Suspect]
     Indication: NASOPHARYNGITIS
     Route: 048
     Dates: start: 19690101

REACTIONS (3)
  - FAECES DISCOLOURED [None]
  - FALL [None]
  - ULCER HAEMORRHAGE [None]
